FAERS Safety Report 5702954-X (Version None)
Quarter: 2008Q2

REPORT INFORMATION
  Report Type: 
  Country: None (occurrence: None)
  Receive Date: 20080411
  Receipt Date: 20080404
  Transmission Date: 20081010
  Serious: Yes (Hospitalization)
  Sender: FDA-Public Use
  Company Number: US-BAXTER-2008BH002837

PATIENT
  Age: 14 Year
  Sex: Female
  Weight: 72 kg

DRUGS (5)
  1. HEPARIN SODIUM [Suspect]
     Indication: PERIPHERAL EMBOLISM
     Route: 058
     Dates: start: 20070516, end: 20070626
  2. LOVENOX [Suspect]
     Indication: PERIPHERAL EMBOLISM
     Route: 058
     Dates: start: 20070303, end: 20070516
  3. VITAMIN TAB [Concomitant]
     Indication: DRUG USE FOR UNKNOWN INDICATION
     Dosage: DOSE UNIT:UNKNOWN
     Route: 065
  4. TYLENOL (CAPLET) [Concomitant]
     Indication: DRUG USE FOR UNKNOWN INDICATION
     Dosage: DOSE UNIT:UNKNOWN
     Route: 065
  5. IBUPROFEN [Concomitant]
     Indication: DRUG USE FOR UNKNOWN INDICATION
     Dosage: DOSE UNIT:UNKNOWN
     Route: 065

REACTIONS (12)
  - ARTHRALGIA [None]
  - DRUG EXPOSURE DURING PREGNANCY [None]
  - FATIGUE [None]
  - HEADACHE [None]
  - INFLUENZA [None]
  - MUSCULAR WEAKNESS [None]
  - MUSCULOSKELETAL DISORDER [None]
  - OEDEMA PERIPHERAL [None]
  - PAIN [None]
  - PAIN IN EXTREMITY [None]
  - STREPTOCOCCAL INFECTION [None]
  - VAGINAL HAEMORRHAGE [None]
